FAERS Safety Report 4675856-8 (Version None)
Quarter: 2005Q2

REPORT INFORMATION
  Report Type: 
  Country: None (occurrence: None)
  Receive Date: 20050525
  Receipt Date: 20050510
  Transmission Date: 20051028
  Serious: Yes (Life-Threatening, Hospitalization)
  Sender: FDA-Public Use
  Company Number: RENA-11375

PATIENT
  Age: 56 Year
  Sex: Male

DRUGS (2)
  1. PHOSBLOCK - 250 MG TABLET [Suspect]
     Indication: HYPERPHOSPHATAEMIA
     Dosage: 2.25 G DAILY; PO
     Route: 048
     Dates: end: 20050423
  2. CALCIUM CARBONATE [Concomitant]

REACTIONS (3)
  - HAEMODIALYSIS [None]
  - LARGE INTESTINE PERFORATION [None]
  - PERITONITIS [None]
